FAERS Safety Report 4321211-X (Version None)
Quarter: 2004Q1

REPORT INFORMATION
  Report Type: 
  Country: None (occurrence: None)
  Receive Date: 20040323
  Receipt Date: 20040316
  Transmission Date: 20041129
  Serious: Yes (Hospitalization, Other)
  Sender: FDA-Public Use
  Company Number: PHBS2004IT03754

PATIENT
  Age: 32 Year
  Sex: Female

DRUGS (3)
  1. TERBINAFINE HCL [Suspect]
     Indication: NAIL TINEA
     Dosage: 250 MG/DAY
     Route: 048
  2. METHYLPREDNISOLONE [Concomitant]
     Dosage: 1.4 MG/KG PER DAY
  3. METHYLPREDNISOLONE [Concomitant]
     Dosage: 0.7 MG/ KG PER DAY

REACTIONS (14)
  - ANTINUCLEAR ANTIBODY POSITIVE [None]
  - CD8 LYMPHOCYTES INCREASED [None]
  - CYTOMEGALOVIRUS ANTIBODY POSITIVE [None]
  - ERYTHEMA [None]
  - ERYTHEMA MULTIFORME [None]
  - FACE OEDEMA [None]
  - HEPATIC STEATOSIS [None]
  - NEUTROPHIL COUNT INCREASED [None]
  - PRURITUS [None]
  - PYREXIA [None]
  - RASH PUSTULAR [None]
  - RASH VESICULAR [None]
  - SKIN LESION [None]
  - WHITE BLOOD CELL COUNT INCREASED [None]
